FAERS Safety Report 18642947 (Version 1)
Quarter: 2020Q4

REPORT INFORMATION
  Report Type: Spontaneous
  Country: PT (occurrence: PT)
  Receive Date: 20201221
  Receipt Date: 20201221
  Transmission Date: 20210114
  Serious: Yes (Other)
  Sender: FDA-Public Use
  Company Number: NVSC2020PT309361

PATIENT
  Age: 29 Year
  Sex: Male

DRUGS (10)
  1. RISPERIDONE. [Suspect]
     Active Substance: RISPERIDONE
     Indication: AUTISM SPECTRUM DISORDER
     Dosage: 9 MG, QD
     Route: 065
  2. HALOPERIDOL. [Suspect]
     Active Substance: HALOPERIDOL
     Indication: AUTISM SPECTRUM DISORDER
     Dosage: 10 MG, QD
     Route: 065
  3. VALPROIC ACID. [Concomitant]
     Active Substance: VALPROIC ACID
     Indication: EPILEPSY
     Dosage: 1500 MG, QD
     Route: 065
  4. RISPERIDONE. [Suspect]
     Active Substance: RISPERIDONE
     Dosage: 2 MG, QD
     Route: 065
  5. RISPERIDONE. [Suspect]
     Active Substance: RISPERIDONE
     Dosage: 6 MG, QD
     Route: 065
  6. ESCITALOPRAM [Suspect]
     Active Substance: ESCITALOPRAM OXALATE
     Indication: AUTISM SPECTRUM DISORDER
     Dosage: 5 MG, QD
     Route: 065
  7. THIORIDAZINE [Suspect]
     Active Substance: THIORIDAZINE
     Indication: AUTISM SPECTRUM DISORDER
     Dosage: UNK
     Route: 065
  8. TOPIRAMATE. [Concomitant]
     Active Substance: TOPIRAMATE
     Indication: AUTISM SPECTRUM DISORDER
     Dosage: UNK
     Route: 065
  9. CLOBAZAM. [Concomitant]
     Active Substance: CLOBAZAM
     Indication: AUTISM SPECTRUM DISORDER
     Dosage: UNK
     Route: 065
  10. AMISULPRIDE [Suspect]
     Active Substance: AMISULPRIDE
     Indication: AUTISM SPECTRUM DISORDER
     Dosage: 25 MG, QD
     Route: 065

REACTIONS (5)
  - Drug ineffective for unapproved indication [Unknown]
  - Drug ineffective [Unknown]
  - Reading disorder [Unknown]
  - Epilepsy [Unknown]
  - Psychomotor hyperactivity [Recovering/Resolving]
